FAERS Safety Report 8136022-7 (Version None)
Quarter: 2012Q1

REPORT INFORMATION
  Report Type: 
  Country: None (occurrence: None)
  Receive Date: 20120209
  Receipt Date: 20120131
  Transmission Date: 20120608
  Serious: Yes (Death, Hospitalization)
  Sender: FDA-Public Use
  Company Number: 2011SP041153

PATIENT
  Sex: Male

DRUGS (1)
  1. PEGATRON (PEGYLATED INTERFERON ALFA-2B W/RIBAVIRIN) [Suspect]
     Indication: PRODUCT USED FOR UNKNOWN INDICATION

REACTIONS (8)
  - ANAEMIA [None]
  - VOMITING [None]
  - NAUSEA [None]
  - PSYCHOTIC DISORDER [None]
  - DIARRHOEA [None]
  - LETHARGY [None]
  - INFECTION [None]
  - OVERDOSE [None]
